FAERS Safety Report 25261619 (Version 5)
Quarter: 2025Q3

REPORT INFORMATION
  Report Type: Report from Study
  Country: JP (occurrence: JP)
  Receive Date: 20250502
  Receipt Date: 20250801
  Transmission Date: 20251021
  Serious: Yes (Hospitalization, Disabling, Other)
  Sender: NOVARTIS
  Company Number: JP-002147023-NVSJ2025JP004810

PATIENT
  Age: 61 Year
  Sex: Male
  Weight: 77.7 kg

DRUGS (4)
  1. VOTRIENT [Suspect]
     Active Substance: PAZOPANIB HYDROCHLORIDE
     Indication: Prostate cancer
     Dosage: 800 MG, QD
     Route: 048
     Dates: start: 20250307, end: 20250411
  2. VOTRIENT [Suspect]
     Active Substance: PAZOPANIB HYDROCHLORIDE
     Route: 048
     Dates: start: 20250516, end: 20250704
  3. Adona [Concomitant]
     Indication: Haematuria
     Route: 042
     Dates: start: 20250425, end: 20250429
  4. TRANSAMIN [Concomitant]
     Active Substance: TRANEXAMIC ACID
     Indication: Haematuria
     Route: 042
     Dates: start: 20250425, end: 20250429

REACTIONS (4)
  - Anaemia [Recovering/Resolving]
  - Prostate cancer [Not Recovered/Not Resolved]
  - Malignant neoplasm progression [Not Recovered/Not Resolved]
  - Platelet count decreased [Recovered/Resolved]

NARRATIVE: CASE EVENT DATE: 20250404
